FAERS Safety Report 17766304 (Version 1)
Quarter: 2020Q2

REPORT INFORMATION
  Report Type: Report from Study
  Country: US (occurrence: US)
  Receive Date: 20200511
  Receipt Date: 20200511
  Transmission Date: 20200714
  Serious: Yes (Hospitalization, Other)
  Sender: FDA-Public Use
  Company Number: US-PFIZER INC-2020183243

PATIENT
  Age: 17 Year
  Sex: Male
  Weight: 67 kg

DRUGS (9)
  1. VINCRISTINE SULFATE. [Suspect]
     Active Substance: VINCRISTINE SULFATE
     Indication: B-CELL TYPE ACUTE LEUKAEMIA
     Dosage: 2 MG, MC1D1, 29, 57
     Route: 042
     Dates: start: 20200124, end: 20200421
  2. MERCAPTOPURINE. [Suspect]
     Active Substance: MERCAPTOPURINE
     Indication: B-CELL TYPE ACUTE LEUKAEMIA
     Dosage: 125 MG, 1X/DAY (QD), TABLET
     Route: 048
     Dates: start: 20200124, end: 20200421
  3. METHOTREXATE. [Suspect]
     Active Substance: METHOTREXATE
     Indication: B-CELL TYPE ACUTE LEUKAEMIA
     Dosage: 33.75 MG, MC1D 8, 15, 22; TABLET, MILLIGRAM
     Route: 048
     Dates: start: 20200131, end: 20200421
  4. VANCOMYCIN HCL [Suspect]
     Active Substance: VANCOMYCIN HYDROCHLORIDE
     Indication: SOFT TISSUE INFECTION
     Dosage: UNK
     Route: 042
     Dates: start: 20200421, end: 20200422
  5. METHOTREXATE SODIUM. [Suspect]
     Active Substance: METHOTREXATE SODIUM
     Indication: B-CELL TYPE ACUTE LEUKAEMIA
     Dosage: 12 MG, MC1D1, 15
     Route: 037
     Dates: start: 20200124, end: 20200421
  6. PREDNISONE. [Suspect]
     Active Substance: PREDNISONE
     Indication: B-CELL TYPE ACUTE LEUKAEMIA
     Dosage: 32.5 MG, BID MC1D1-5, 29-33, 57-61; TABLET, MILLIGRAM/KILOGRAM
     Route: 048
     Dates: start: 20200124, end: 20200421
  7. ZOSYN [Suspect]
     Active Substance: PIPERACILLIN SODIUM\TAZOBACTAM SODIUM
     Indication: SOFT TISSUE INFECTION
     Dosage: UNK
     Route: 042
     Dates: start: 20200421, end: 20200422
  8. ACYCLOVIR. [Suspect]
     Active Substance: ACYCLOVIR
     Route: 048
  9. INCB018424 [Suspect]
     Active Substance: RUXOLITINIB
     Indication: B-CELL TYPE ACUTE LEUKAEMIA
     Dosage: 85 MG, BID IN CONSOLIDATION DI AND MAINTENANCE CYCLE 1, TABLET, MILLIGRAM
     Route: 048
     Dates: start: 20190322, end: 20200421

REACTIONS (2)
  - Soft tissue infection [Not Recovered/Not Resolved]
  - Acute kidney injury [Not Recovered/Not Resolved]

NARRATIVE: CASE EVENT DATE: 20200421
